FAERS Safety Report 8670197 (Version 2)
Quarter: 2012Q4

REPORT INFORMATION
  Report Type: 
  Country: US (occurrence: US)
  Receive Date: 20120718
  Receipt Date: 20120924
  Transmission Date: 20130627
  Serious: No
  Sender: FDA-Public Use
  Company Number: US-009507513-1207USA004364

PATIENT

DRUGS (2)
  1. PEGINTRON [Suspect]
     Indication: HEPATITIS C
     Dosage: 40 Microgram, qw
     Route: 058
     Dates: start: 20120314, end: 20120611
  2. REBETOL [Suspect]
     Indication: HEPATITIS C
     Dosage: 240 mg, UNK
     Route: 048
     Dates: start: 20120314, end: 20120611

REACTIONS (5)
  - Abnormal behaviour [Recovered/Resolved]
  - Anger [Recovered/Resolved]
  - Aggression [Recovered/Resolved]
  - Trichotillomania [Recovered/Resolved]
  - Self injurious behaviour [Recovered/Resolved]
